FAERS Safety Report 8878472 (Version 1)
Quarter: 2012Q4

REPORT INFORMATION
  Report Type: 
  Country: US (occurrence: US)
  Receive Date: 20121025
  Receipt Date: 20121025
  Transmission Date: 20130627
  Serious: No
  Sender: FDA-Public Use
  Company Number: US-AMGEN-USASP2012014611

PATIENT
  Sex: Female
  Weight: 69.39 kg

DRUGS (10)
  1. ENBREL [Suspect]
     Indication: PRODUCT USED FOR UNKNOWN INDICATION
     Dosage: 50 mg, qwk
     Route: 058
  2. PREDNISONE [Concomitant]
     Dosage: 5 mg, UNK
  3. MELOXICAM [Concomitant]
     Dosage: 7.5 mg, UNK
  4. FOLIC ACID [Concomitant]
  5. SIMVASTATIN [Concomitant]
     Dosage: 5 mg, UNK
  6. CARBIDOPA LEVODOPA [Concomitant]
  7. METHOTREXATE [Concomitant]
     Dosage: 20 mg, UNK
  8. DIOVAN [Concomitant]
     Dosage: 160 mg, UNK
  9. ZOLOFT [Concomitant]
     Dosage: 25 mg, UNK
  10. CARVEDILOL [Concomitant]
     Dosage: 12.5 mg, UNK

REACTIONS (7)
  - Pain in extremity [Unknown]
  - Arthralgia [Unknown]
  - Muscular weakness [Unknown]
  - Oedema peripheral [Unknown]
  - Fatigue [Unknown]
  - Dyspnoea [Unknown]
  - Diverticulitis [Unknown]
